FAERS Safety Report 7464966-8 (Version None)
Quarter: 2011Q2

REPORT INFORMATION
  Report Type: 
  Country: None (occurrence: None)
  Receive Date: 20110509
  Receipt Date: 20110429
  Transmission Date: 20111010
  Serious: Yes (Hospitalization)
  Sender: FDA-Public Use
  Company Number: US-JNJFOC-20110500226

PATIENT
  Sex: Male

DRUGS (9)
  1. LUPRON [Concomitant]
     Indication: PROSTATE CANCER
     Route: 030
  2. ANTIRETROVIRAL [Concomitant]
     Indication: HIV INFECTION
  3. CHEMOTHERAPY [Concomitant]
     Indication: PROSTATE CANCER
  4. UNKNOWN MEDICATION [Concomitant]
     Indication: HIV INFECTION
  5. COREG [Concomitant]
  6. FLOMAX [Concomitant]
     Indication: PROSTATE CANCER
  7. PRISTIQ [Concomitant]
     Indication: DEPRESSION
     Route: 048
  8. PREZISTA [Suspect]
     Indication: HIV INFECTION
     Route: 048
  9. EPZICOM [Concomitant]
     Indication: HIV INFECTION

REACTIONS (3)
  - DEHYDRATION [None]
  - CYTOMEGALOVIRUS INFECTION [None]
  - DIARRHOEA [None]
